FAERS Safety Report 8414499-7 (Version None)
Quarter: 2012Q2

REPORT INFORMATION
  Report Type: 
  Country: None (occurrence: None)
  Receive Date: 20120605
  Receipt Date: 20120523
  Transmission Date: 20120825
  Serious: No
  Sender: FDA-Public Use
  Company Number: US-ASTRAZENECA-2012SE33083

PATIENT
  Age: 60 Year
  Sex: Female

DRUGS (2)
  1. FASLODEX [Suspect]
     Indication: BREAST CANCER METASTATIC
     Dosage: ONCE A MONTH
     Route: 030
  2. FASLODEX [Suspect]
     Dosage: ONCE A MONTH
     Route: 058

REACTIONS (4)
  - FOOD CRAVING [None]
  - INJECTION SITE PAIN [None]
  - INJECTION SITE SWELLING [None]
  - FATIGUE [None]
